FAERS Safety Report 5919309-5 (Version None)
Quarter: 2008Q4

REPORT INFORMATION
  Report Type: 
  Country: None (occurrence: None)
  Receive Date: 20081015
  Receipt Date: 20081006
  Transmission Date: 20090506
  Serious: Yes (Other)
  Sender: FDA-Public Use
  Company Number: PHHY2008ZA23444

PATIENT
  Sex: Female

DRUGS (6)
  1. RITALIN [Suspect]
     Dosage: 5 MG/DAY
     Route: 048
     Dates: end: 20080925
  2. RITALIN [Suspect]
     Dosage: 20 MG/DAY
     Route: 048
  3. CONCERTA [Suspect]
     Indication: DISTURBANCE IN ATTENTION
     Dosage: 8 MG/DAY
     Dates: start: 20070101
  4. CONCERTA [Suspect]
     Dosage: 16 MG/DAY
  5. CONCERTA [Suspect]
     Dosage: 8 MG/DAY
  6. STRATTERA [Suspect]

REACTIONS (8)
  - ANOREXIA [None]
  - ANXIETY [None]
  - APHASIA [None]
  - DEPRESSED MOOD [None]
  - EMOTIONAL DISORDER [None]
  - INSOMNIA [None]
  - NAUSEA [None]
  - PALLOR [None]
